APPROVED DRUG PRODUCT: CROMOLYN SODIUM
Active Ingredient: CROMOLYN SODIUM
Strength: 10MG/ML
Dosage Form/Route: SOLUTION;INHALATION
Application: A074209 | Product #001
Applicant: EUGIA PHARMA SPECIALITIES LTD
Approved: Apr 26, 1994 | RLD: No | RS: No | Type: DISCN